FAERS Safety Report 6820951-8 (Version None)
Quarter: 2010Q3

REPORT INFORMATION
  Report Type: 
  Country: None (occurrence: None)
  Receive Date: 20100707
  Receipt Date: 20070910
  Transmission Date: 20110219
  Serious: Yes (Hospitalization, Other)
  Sender: FDA-Public Use
  Company Number: US-PFIZER INC-2007075243

PATIENT
  Sex: Female

DRUGS (3)
  1. SERTRALINE [Suspect]
  2. ZOLOFT [Suspect]
  3. MULTI-VITAMINS [Concomitant]

REACTIONS (2)
  - HEPATIC ENZYME INCREASED [None]
  - MALAISE [None]
